FAERS Safety Report 17562638 (Version 2)
Quarter: 2021Q2

REPORT INFORMATION
  Report Type: Spontaneous
  Country: US (occurrence: US)
  Receive Date: 20200319
  Receipt Date: 20210408
  Transmission Date: 20210716
  Serious: No
  Sender: FDA-Public Use
  Company Number: US-EISAI MEDICAL RESEARCH-EC-2020-071499

PATIENT
  Age: 57 Year
  Sex: Female
  Weight: 90 kg

DRUGS (3)
  1. BELVIQ [Suspect]
     Active Substance: LORCASERIN HYDROCHLORIDE
     Indication: WEIGHT DECREASED
     Dosage: DOSE AND FREQUENCY UNKNOWN
     Route: 048
     Dates: start: 201705, end: 201802
  2. BELVIQ [Suspect]
     Active Substance: LORCASERIN HYDROCHLORIDE
     Dosage: DOSE AND FREQUENCY UNKNOWN
     Route: 048
     Dates: start: 201806, end: 201901
  3. BELVIQ [Suspect]
     Active Substance: LORCASERIN HYDROCHLORIDE
     Route: 048
     Dates: start: 201908

REACTIONS (3)
  - Uveitis [Unknown]
  - Arthritis [Unknown]
  - Rotator cuff syndrome [Unknown]

NARRATIVE: CASE EVENT DATE: 201906
